FAERS Safety Report 8374301-9 (Version None)
Quarter: 2012Q2

REPORT INFORMATION
  Report Type: 
  Country: None (occurrence: None)
  Receive Date: 20120521
  Receipt Date: 20120514
  Transmission Date: 20120825
  Serious: Yes (Hospitalization, Other)
  Sender: FDA-Public Use
  Company Number: PHHY2011AR59836

PATIENT
  Sex: Female

DRUGS (1)
  1. ONBREZ [Suspect]
     Indication: PULMONARY INTERSTITIAL EMPHYSEMA SYNDROME
     Dosage: 150 UG, DAILY
     Dates: start: 20110616

REACTIONS (8)
  - PYREXIA [None]
  - SYNCOPE [None]
  - PULMONARY CONGESTION [None]
  - DIZZINESS [None]
  - BACK PAIN [None]
  - CHRONIC OBSTRUCTIVE PULMONARY DISEASE [None]
  - DISCOMFORT [None]
  - INFLUENZA [None]
